FAERS Safety Report 4625235-4 (Version None)
Quarter: 2005Q1

REPORT INFORMATION
  Report Type: 
  Country: None (occurrence: None)
  Receive Date: 20050325
  Receipt Date: 20050201
  Transmission Date: 20050727
  Serious: No
  Sender: FDA-Public Use
  Company Number: USA050189295

PATIENT
  Age: 68 Year
  Sex: Female

DRUGS (3)
  1. FORTEO [Suspect]
     Indication: OSTEOPOROSIS
     Dates: start: 20040101
  2. CALCIUM GLUCONATE [Concomitant]
  3. TUMS (CALCIUM CARBONATE) [Concomitant]

REACTIONS (2)
  - BONE DENSITY DECREASED [None]
  - DRUG INEFFECTIVE [None]
